FAERS Safety Report 25056089 (Version 1)
Quarter: 2025Q1

REPORT INFORMATION
  Report Type: Spontaneous
  Country: US (occurrence: US)
  Receive Date: 20250309
  Receipt Date: 20250309
  Transmission Date: 20250409
  Serious: Yes (Other)
  Sender: BRISTOL-MYERS SQUIBB COMPANY
  Company Number: US-BRISTOL-MYERS SQUIBB COMPANY-2025-029263

PATIENT
  Age: 47 Year
  Sex: Female

DRUGS (1)
  1. ZEPOSIA [Suspect]
     Active Substance: OZANIMOD HYDROCHLORIDE
     Indication: Colitis ulcerative
     Route: 048

REACTIONS (6)
  - T-lymphocyte count decreased [Unknown]
  - C-reactive protein increased [Unknown]
  - Carditis [Unknown]
  - Pneumonitis [Unknown]
  - Hepatitis [Unknown]
  - Vanishing bile duct syndrome [Unknown]
